FAERS Safety Report 9957168 (Version 1)
Quarter: 2014Q1

REPORT INFORMATION
  Report Type: Report from Study
  Country: US (occurrence: US)
  Receive Date: 20140304
  Receipt Date: 20140304
  Transmission Date: 20141002
  Serious: No
  Sender: FDA-Public Use
  Company Number: US-ABBVIE-13P-163-1097843-00

PATIENT
  Age: 54 Year
  Sex: Female

DRUGS (5)
  1. HUMIRA [Suspect]
     Indication: PSORIASIS
     Dates: start: 201210, end: 20130418
  2. LIOTHYRONINE [Concomitant]
     Indication: HYPOTHYROIDISM
  3. METANX [Concomitant]
     Indication: MINERAL SUPPLEMENTATION
  4. CLONAZEPAM [Concomitant]
     Indication: INSOMNIA
  5. ACYCLOVIR [Concomitant]
     Indication: ORAL HERPES

REACTIONS (1)
  - Hepatic enzyme increased [Not Recovered/Not Resolved]
